FAERS Safety Report 14413139 (Version 2)
Quarter: 2018Q1

REPORT INFORMATION
  Report Type: Not Available
  Country: US (occurrence: US)
  Receive Date: 20180119
  Receipt Date: 20180216
  Transmission Date: 20180509
  Serious: Yes (Hospitalization)
  Sender: FDA-Public Use
  Company Number: US-NEUROCRINE BIOSCIENCES INC.-2018NBI00109

PATIENT
  Age: 85 Year
  Sex: Female

DRUGS (19)
  1. INGREZZA [Suspect]
     Active Substance: VALBENAZINE
     Indication: PRODUCT USED FOR UNKNOWN INDICATION
     Route: 048
     Dates: start: 20170913, end: 20170919
  2. CLARITIN [Concomitant]
     Active Substance: LORATADINE
  3. FISH OIL [Concomitant]
     Active Substance: FISH OIL
  4. FUROSEMIDE. [Concomitant]
     Active Substance: FUROSEMIDE
  5. ASPIRIN. [Concomitant]
     Active Substance: ASPIRIN
  6. ATIVAN [Concomitant]
     Active Substance: LORAZEPAM
  7. CRANBERRY. [Concomitant]
     Active Substance: CRANBERRY
  8. VITAMIN E [Concomitant]
     Active Substance: .ALPHA.-TOCOPHEROL
  9. PROLIXIN [Concomitant]
     Active Substance: FLUPHENAZINE HYDROCHLORIDE
     Indication: SCHIZOPHRENIA
     Route: 030
  10. BENZTROPINE. [Concomitant]
     Active Substance: BENZTROPINE
  11. COLACE [Concomitant]
     Active Substance: DOCUSATE SODIUM
  12. INGREZZA [Suspect]
     Active Substance: VALBENAZINE
     Route: 048
     Dates: start: 20170920
  13. ALDACTONE [Concomitant]
     Active Substance: SPIRONOLACTONE
  14. CARVEDILOL. [Concomitant]
     Active Substance: CARVEDILOL
  15. OCUVITE [Concomitant]
     Active Substance: VITAMINS
  16. ENTRESTO [Concomitant]
     Active Substance: SACUBITRIL\VALSARTAN
  17. VITAMIN D [Concomitant]
     Active Substance: CHOLECALCIFEROL
  18. POTASSIUM CHLORIDE. [Concomitant]
     Active Substance: POTASSIUM CHLORIDE
  19. VITAMIN B [Concomitant]
     Active Substance: VITAMIN B

REACTIONS (3)
  - Cardiac failure [Unknown]
  - Urinary tract infection [Unknown]
  - Upper respiratory tract infection [Unknown]

NARRATIVE: CASE EVENT DATE: 20171217
